FAERS Safety Report 17188076 (Version 1)
Quarter: 2019Q4

REPORT INFORMATION
  Report Type: Spontaneous
  Country: PT (occurrence: PT)
  Receive Date: 20191221
  Receipt Date: 20191221
  Transmission Date: 20200122
  Serious: Yes (Other)
  Sender: FDA-Public Use
  Company Number: PT-ACCORD-166579

PATIENT
  Age: 67 Year
  Weight: 94.3 kg

DRUGS (2)
  1. TRASTUZUMAB. [Concomitant]
     Active Substance: TRASTUZUMAB
     Route: 042
  2. PACLITAXEL ACCORD [Suspect]
     Active Substance: PACLITAXEL
     Indication: BREAST CANCER
     Route: 042
     Dates: start: 20190916, end: 20191025

REACTIONS (5)
  - Diarrhoea [Recovering/Resolving]
  - Blister [Recovering/Resolving]
  - Bradyphrenia [Recovering/Resolving]
  - Chest pain [Recovering/Resolving]
  - Mutism [Recovering/Resolving]
